FAERS Safety Report 25159489 (Version 1)
Quarter: 2025Q2

REPORT INFORMATION
  Report Type: Spontaneous
  Country: US (occurrence: US)
  Receive Date: 20250404
  Receipt Date: 20250404
  Transmission Date: 20250716
  Serious: Yes (Other)
  Sender: COOPERSURGICAL
  Company Number: US-COOPERSURGICAL, INC.-2025CPS002441

PATIENT
  Sex: Female
  Weight: 77.098 kg

DRUGS (3)
  1. PARAGARD T 380A [Suspect]
     Active Substance: COPPER
     Route: 015
     Dates: start: 20170613
  2. EVEKEO [Concomitant]
     Active Substance: AMPHETAMINE SULFATE
     Dates: start: 2011
  3. XANAX [Concomitant]
     Active Substance: ALPRAZOLAM
     Dates: start: 2009

REACTIONS (13)
  - Fallopian tube obstruction [Recovered/Resolved]
  - Salpingectomy [Recovered/Resolved]
  - Infertility female [Not Recovered/Not Resolved]
  - Ruptured ectopic pregnancy [Recovered/Resolved]
  - Abortion spontaneous [Recovered/Resolved]
  - Reproductive complication associated with device [Not Recovered/Not Resolved]
  - Device breakage [Recovered/Resolved]
  - Foreign body in reproductive tract [Recovered/Resolved]
  - Complication of device removal [Recovered/Resolved]
  - Anxiety [Not Recovered/Not Resolved]
  - Grief reaction [Unknown]
  - Emotional distress [Unknown]
  - Pain [Unknown]

NARRATIVE: CASE EVENT DATE: 20220101
